FAERS Safety Report 4748009-2 (Version None)
Quarter: 2005Q3

REPORT INFORMATION
  Report Type: 
  Country: None (occurrence: None)
  Receive Date: 20050815
  Receipt Date: 20050615
  Transmission Date: 20060218
  Serious: No
  Sender: FDA-Public Use
  Company Number: USA0506100041

PATIENT
  Age: 45 Year
  Sex: Male

DRUGS (1)
  1. CIALIS [Suspect]
     Dosage: 10 MG
     Dates: start: 20040604

REACTIONS (3)
  - BALANCE DISORDER [None]
  - DIZZINESS [None]
  - NAUSEA [None]
